FAERS Safety Report 6041505-X (Version None)
Quarter: 2009Q1

REPORT INFORMATION
  Report Type: 
  Country: None (occurrence: None)
  Receive Date: 20090116
  Receipt Date: 20090105
  Transmission Date: 20090719
  Serious: Yes (Hospitalization)
  Sender: FDA-Public Use
  Company Number: JP-GENENTECH-275314

PATIENT
  Sex: Female

DRUGS (6)
  1. AVASTIN [Suspect]
     Indication: COLORECTAL CANCER METASTATIC
     Dosage: 5 MG/KG, Q2W
     Route: 041
     Dates: start: 20081016
  2. ELPLAT [Concomitant]
     Indication: DRUG USE FOR UNKNOWN INDICATION
     Dosage: UNK
     Route: 065
     Dates: start: 20080410
  3. CALCIUM LEVOFOLINATE [Concomitant]
     Indication: DRUG USE FOR UNKNOWN INDICATION
     Dosage: UNK
     Route: 065
     Dates: start: 20080410
  4. FLUOROURACIL [Concomitant]
     Indication: DRUG USE FOR UNKNOWN INDICATION
     Dosage: UNK
     Route: 065
     Dates: start: 20080410
  5. PURSENNID [Concomitant]
     Indication: CONSTIPATION
     Dosage: 2 TABLET, QD
     Route: 048
     Dates: start: 20071126
  6. MAGMITT [Concomitant]
     Indication: CONSTIPATION
     Dosage: 990 MG, TID
     Route: 048
     Dates: start: 20071217

REACTIONS (1)
  - INTESTINAL OBSTRUCTION [None]
